FAERS Safety Report 18517258 (Version 1)
Quarter: 2020Q4

REPORT INFORMATION
  Report Type: Spontaneous
  Country: US (occurrence: US)
  Receive Date: 20201117
  Receipt Date: 20201117
  Transmission Date: 20210114
  Serious: Yes (Life-Threatening, Hospitalization, Other)
  Sender: FDA-Public Use
  Company Number: None

PATIENT
  Age: 67 Year
  Sex: Male
  Weight: 68.04 kg

DRUGS (15)
  1. PREDNISONE. [Concomitant]
     Active Substance: PREDNISONE
  2. CALCIUM AND VITAMIN D [Concomitant]
     Active Substance: CALCIUM\VITAMIN D
  3. FOSAMAX [Concomitant]
     Active Substance: ALENDRONATE SODIUM
  4. METOPROLOL. [Concomitant]
     Active Substance: METOPROLOL
  5. TAMSOULOSIN [Concomitant]
  6. LORAZEPAM. [Concomitant]
     Active Substance: LORAZEPAM
  7. VITAMIN D [Concomitant]
     Active Substance: VITAMIN D NOS
  8. GADOLINIUM-BASED CONTRAST AGENT [Suspect]
     Active Substance: GADOLINIUM
     Indication: MAGNETIC RESONANCE IMAGING ABDOMINAL
     Dates: start: 20170825, end: 20170825
  9. AMLODIPINE [Concomitant]
     Active Substance: AMLODIPINE BESYLATE
  10. EPLERENONE. [Concomitant]
     Active Substance: EPLERENONE
  11. BAYER LOW DOSE 81 MG  ASPIRIN [Concomitant]
  12. CALCITRIOL. [Concomitant]
     Active Substance: CALCITRIOL
  13. LISINOPRIL. [Concomitant]
     Active Substance: LISINOPRIL
  14. ATORVASTATIN [Concomitant]
     Active Substance: ATORVASTATIN
  15. BUPROPRION [Concomitant]
     Active Substance: BUPROPION

REACTIONS (8)
  - Myocardial infarction [None]
  - Hand-eye coordination impaired [None]
  - Atrial fibrillation [None]
  - Anaemia [None]
  - Contrast media allergy [None]
  - Kidney infection [None]
  - Coronary artery occlusion [None]
  - Complication associated with device [None]

NARRATIVE: CASE EVENT DATE: 20170825
